FAERS Safety Report 6704445-6 (Version None)
Quarter: 2010Q2

REPORT INFORMATION
  Report Type: 
  Country: None (occurrence: None)
  Receive Date: 20100430
  Receipt Date: 20100421
  Transmission Date: 20101027
  Serious: Yes (Other)
  Sender: FDA-Public Use
  Company Number: JP-ABBOTT-10P-087-0622822-00

PATIENT
  Sex: Female
  Weight: 8 kg

DRUGS (6)
  1. CEFDINIR [Suspect]
     Indication: INFECTION
     Route: 048
     Dates: start: 20090509, end: 20090512
  2. FAROM [Suspect]
     Indication: INFECTION
     Route: 048
     Dates: start: 20090501, end: 20090505
  3. ERYTHROMYCIN [Suspect]
     Indication: INFECTION
     Route: 048
     Dates: start: 20090505, end: 20090506
  4. ZITHROMAX [Suspect]
     Indication: INFECTION
     Route: 048
     Dates: start: 20090507, end: 20090509
  5. PACETCOOL [Suspect]
     Indication: INFECTION
     Route: 042
     Dates: start: 20090512, end: 20090516
  6. PACETCOOL [Suspect]
     Route: 042
     Dates: start: 20090524, end: 20090525

REACTIONS (1)
  - STEVENS-JOHNSON SYNDROME [None]
